FAERS Safety Report 23819348 (Version 1)
Quarter: 2024Q2

REPORT INFORMATION
  Report Type: Spontaneous
  Country: US (occurrence: US)
  Receive Date: 20240506
  Receipt Date: 20240506
  Transmission Date: 20240716
  Serious: No
  Sender: FDA-Public Use
  Company Number: US-AUROBINDO-AUR-APL-2024-000752

PATIENT
  Age: 89 Year
  Sex: Female
  Weight: 77.11 kg

DRUGS (1)
  1. DEXTROMETHORPHAN\GUAIFENESIN [Suspect]
     Active Substance: DEXTROMETHORPHAN\GUAIFENESIN
     Indication: Secretion discharge
     Dosage: UNK
     Route: 065
     Dates: start: 202309, end: 20231227

REACTIONS (5)
  - Hypokinesia [Unknown]
  - Joint stiffness [Unknown]
  - Limb discomfort [Unknown]
  - Moaning [Unknown]
  - Musculoskeletal stiffness [Unknown]

NARRATIVE: CASE EVENT DATE: 20231227
